FAERS Safety Report 15635133 (Version 4)
Quarter: 2019Q1

REPORT INFORMATION
  Report Type: Spontaneous
  Country: PT (occurrence: PT)
  Receive Date: 20181119
  Receipt Date: 20190207
  Transmission Date: 20190417
  Serious: Yes (Hospitalization, Other)
  Sender: FDA-Public Use
  Company Number: PT-B.I. PHARMACEUTICALS,INC./RIDGEFIELD-2018-BI-055912

PATIENT
  Age: 77 Year
  Sex: Female

DRUGS (1)
  1. PRADAXA [Suspect]
     Active Substance: DABIGATRAN ETEXILATE MESYLATE
     Indication: ATRIAL FIBRILLATION
     Route: 065

REACTIONS (9)
  - Visual impairment [Recovering/Resolving]
  - Gingival bleeding [Unknown]
  - Ischaemic stroke [Recovered/Resolved]
  - Asthenia [Unknown]
  - Anosognosia [Recovering/Resolving]
  - Carotid artery occlusion [Unknown]
  - Dysarthria [Recovering/Resolving]
  - Hypotonic-hyporesponsive episode [Recovering/Resolving]
  - Hemiplegia [Recovering/Resolving]
